FAERS Safety Report 14851261 (Version 1)
Quarter: 2018Q2

REPORT INFORMATION
  Report Type: Spontaneous
  Country: FR (occurrence: FR)
  Receive Date: 20180507
  Receipt Date: 20180507
  Transmission Date: 20180711
  Serious: Yes (Hospitalization)
  Sender: FDA-Public Use
  Company Number: FR-TEVA-2018-FR-888080

PATIENT
  Age: 3 Year
  Sex: Female
  Weight: 15.7 kg

DRUGS (4)
  1. PURINETHOL [Suspect]
     Active Substance: MERCAPTOPURINE
     Indication: ACUTE LEUKAEMIA
     Route: 048
  2. IMETH 10 MG,SCORED TABLET [Suspect]
     Active Substance: METHOTREXATE
     Indication: ACUTE LEUKAEMIA
     Route: 048
  3. IMETH 10 MG,SCORED TABLET [Suspect]
     Active Substance: METHOTREXATE
     Route: 048
  4. BACTRIM [Suspect]
     Active Substance: SULFAMETHOXAZOLE\TRIMETHOPRIM
     Indication: OPPORTUNISTIC INFECTION PROPHYLAXIS
     Route: 048

REACTIONS (5)
  - Mucosal inflammation [Recovering/Resolving]
  - Hepatocellular injury [Recovering/Resolving]
  - Pyrexia [Recovering/Resolving]
  - Agranulocytosis [Not Recovered/Not Resolved]
  - Rash [Recovering/Resolving]
